FAERS Safety Report 5157249-2 (Version None)
Quarter: 2006Q4

REPORT INFORMATION
  Report Type: 
  Country: None (occurrence: None)
  Receive Date: 20061127
  Receipt Date: 20061026
  Transmission Date: 20070319
  Serious: Yes (Other)
  Sender: FDA-Public Use
  Company Number: US-AVENTIS-200621162GDDC

PATIENT
  Age: 73 Year
  Sex: Male
  Weight: 85.7 kg

DRUGS (16)
  1. TAXOTERE [Suspect]
     Indication: PROSTATE CANCER
     Route: 042
     Dates: start: 20031007, end: 20050527
  2. TAXOTERE [Suspect]
     Route: 042
     Dates: start: 20050923, end: 20060613
  3. DN-101 [Suspect]
     Indication: PROSTATE CANCER
     Route: 048
     Dates: start: 20031007, end: 20050526
  4. PREVACID [Concomitant]
  5. LEVSIN [Concomitant]
  6. LOMOTIL                            /00034001/ [Concomitant]
  7. ATENOLOL [Concomitant]
  8. LISINOPRIL [Concomitant]
  9. CELEBREX [Concomitant]
  10. ASPIRIN [Concomitant]
  11. VALTREX [Concomitant]
  12. VALIUM [Concomitant]
  13. OXYCODONE HCL [Concomitant]
  14. BULK PRODUCERS [Concomitant]
     Dosage: DOSE: UNK
  15. LUPRON [Concomitant]
     Dosage: DOSE: UNK
  16. DEXAMETHASONE [Concomitant]
     Dosage: DOSE: UNK

REACTIONS (18)
  - ABDOMINAL DISCOMFORT [None]
  - ASCITES [None]
  - BLOOD CREATININE INCREASED [None]
  - BLOOD GLUCOSE INCREASED [None]
  - BLOOD POTASSIUM INCREASED [None]
  - BLOOD UREA INCREASED [None]
  - DYSPNOEA [None]
  - FATIGUE [None]
  - HEPATIC CIRRHOSIS [None]
  - HEPATIC CYST [None]
  - HEPATIC STEATOSIS [None]
  - HEPATOCELLULAR DAMAGE [None]
  - NEPHROLITHIASIS [None]
  - PLEURAL EFFUSION [None]
  - PORTAL VEIN THROMBOSIS [None]
  - PROTEIN TOTAL DECREASED [None]
  - RENAL CYST [None]
  - SPLENIC VEIN THROMBOSIS [None]
